FAERS Safety Report 7853453-0 (Version None)
Quarter: 2011Q4

REPORT INFORMATION
  Report Type: 
  Country: None (occurrence: None)
  Receive Date: 20111026
  Receipt Date: 20111017
  Transmission Date: 20120403
  Serious: Yes (Hospitalization, Other)
  Sender: FDA-Public Use
  Company Number: SE-MILLENNIUM PHARMACEUTICALS, INC.-2011-04963

PATIENT

DRUGS (1)
  1. VELCADE [Suspect]
     Indication: MULTIPLE MYELOMA
     Route: 065

REACTIONS (4)
  - OXYGEN SATURATION ABNORMAL [None]
  - BLOOD LACTIC ACID INCREASED [None]
  - FEELING ABNORMAL [None]
  - ORTHOPNOEA [None]
